FAERS Safety Report 9691687 (Version 2)
Quarter: 2013Q4

REPORT INFORMATION
  Report Type: Report from Study
  Country: MX (occurrence: MX)
  Receive Date: 20131115
  Receipt Date: 20131126
  Transmission Date: 20140711
  Serious: Yes (Other)
  Sender: FDA-Public Use
  Company Number: MX-ABBVIE-13P-107-1169443-00

PATIENT
  Age: 53 Year
  Sex: Male

DRUGS (2)
  1. RITONAVIR [Suspect]
     Indication: HIV INFECTION
     Route: 048
  2. RALTEGRAVIR [Concomitant]
     Route: 048
     Dates: start: 20130816

REACTIONS (2)
  - Overdose [Recovered/Resolved]
  - Overdose [Recovered/Resolved]
